FAERS Safety Report 6017587-8 (Version None)
Quarter: 2008Q4

REPORT INFORMATION
  Report Type: 
  Country: None (occurrence: None)
  Receive Date: 20081223
  Receipt Date: 20081217
  Transmission Date: 20090506
  Serious: Yes (Hospitalization)
  Sender: FDA-Public Use
  Company Number: US-AVENTIS-200818515US

PATIENT
  Sex: Female

DRUGS (12)
  1. LANTUS [Suspect]
     Route: 058
     Dates: start: 20020101
  2. NOVOLOG [Concomitant]
     Dosage: DOSE: UNK
  3. CARDIOVASCULAR SYSTEM DRUGS [Concomitant]
     Dosage: DOSE: UNK
  4. CARDIOVASCULAR SYSTEM DRUGS [Concomitant]
     Dosage: DOSE: UNK
  5. LISINOPRIL [Concomitant]
     Dosage: DOSE: UNK
  6. LYRICA [Concomitant]
     Dosage: DOSE: UNK
  7. SIMVASTATIN [Concomitant]
     Dosage: DOSE: UNK
  8. FLEXERIL [Concomitant]
     Dosage: DOSE: UNK
  9. UNKNOWN DRUG [Concomitant]
     Dosage: DOSE: UNK
  10. ADVAIR DISKUS 250/50 [Concomitant]
     Dosage: DOSE: UNK
  11. XOPENEX [Concomitant]
     Dosage: DOSE: UNK
  12. LOVASTATIN [Concomitant]
     Dosage: DOSE: UNK

REACTIONS (3)
  - CONDITION AGGRAVATED [None]
  - EMPHYSEMA [None]
  - PNEUMONIA [None]
